FAERS Safety Report 13408040 (Version 5)
Quarter: 2018Q1

REPORT INFORMATION
  Report Type: Spontaneous
  Country: IT (occurrence: IT)
  Receive Date: 20170406
  Receipt Date: 20180306
  Transmission Date: 20180508
  Serious: Yes (Hospitalization, Other)
  Sender: FDA-Public Use
  Company Number: IT-SUN PHARMACEUTICAL INDUSTRIES LTD-2017RR-137745

PATIENT
  Age: 85 Year
  Sex: Female

DRUGS (2)
  1. LORAZEPAM. [Suspect]
     Active Substance: LORAZEPAM
     Indication: DRUG ABUSE
     Dosage: 10 DF, ONE TIME DOSE (SINGLE DOSAGE OF 10 DF) ; IN TOTAL
     Route: 048
  2. ALPRAZOLAM. [Suspect]
     Active Substance: ALPRAZOLAM
     Indication: DRUG ABUSE
     Dosage: TOTAL
     Route: 048

REACTIONS (4)
  - Drug abuse [Unknown]
  - Sopor [Unknown]
  - Pneumonia aspiration [Unknown]
  - Overdose [Unknown]

NARRATIVE: CASE EVENT DATE: 20170123
